FAERS Safety Report 4981038-2 (Version None)
Quarter: 2006Q2

REPORT INFORMATION
  Report Type: 
  Country: None (occurrence: None)
  Receive Date: 20060418
  Receipt Date: 20060331
  Transmission Date: 20061013
  Serious: Yes (Hospitalization)
  Sender: FDA-Public Use
  Company Number: USA040977645

PATIENT
  Age: 7 Year
  Sex: Male
  Weight: 22.7 kg

DRUGS (7)
  1. STRATTERA [Suspect]
     Indication: ATTENTION DEFICIT/HYPERACTIVITY DISORDER
     Dosage: SEE IMAGE
     Dates: start: 20030901, end: 20040901
  2. STRATTERA [Suspect]
     Indication: ATTENTION DEFICIT/HYPERACTIVITY DISORDER
     Dosage: SEE IMAGE
     Dates: start: 20050101
  3. PHENERGAN (PROMETHAZINE HYDROCHLORIDE) [Concomitant]
     Indication: ATTENTION DEFICIT/HYPERACTIVITY DISORDER
     Dosage: 36 MG, EACH MORNING
     Dates: start: 20030901, end: 20040901
  4. GUAIFENESIN (GUAIFENESIN L.A.) [Concomitant]
  5. ZANTAC [Concomitant]
  6. CONCERTA [Concomitant]
  7. TENEX [Concomitant]

REACTIONS (17)
  - BLOOD CREATININE DECREASED [None]
  - BLOOD POTASSIUM DECREASED [None]
  - BLOOD PRESSURE INCREASED [None]
  - BLOOD THYROID STIMULATING HORMONE INCREASED [None]
  - CONSTIPATION [None]
  - DEHYDRATION [None]
  - DRUG INEFFECTIVE [None]
  - DRY SKIN [None]
  - FATIGUE [None]
  - GASTROENTERITIS VIRAL [None]
  - GASTROOESOPHAGEAL REFLUX DISEASE [None]
  - LETHARGY [None]
  - PLATELET COUNT INCREASED [None]
  - POOR PERIPHERAL CIRCULATION [None]
  - PRESCRIBED OVERDOSE [None]
  - SOMNOLENCE [None]
  - WHITE BLOOD CELL COUNT INCREASED [None]
